FAERS Safety Report 13414219 (Version 3)
Quarter: 2017Q2

REPORT INFORMATION
  Report Type: Spontaneous
  Country: DE (occurrence: DE)
  Receive Date: 20170407
  Receipt Date: 20170517
  Transmission Date: 20170830
  Serious: Yes (Hospitalization)
  Sender: FDA-Public Use
  Company Number: DE-PFIZER INC-2017143549

PATIENT
  Age: 68 Year
  Sex: Female

DRUGS (9)
  1. IBRANCE [Suspect]
     Active Substance: PALBOCICLIB
     Indication: BREAST CANCER FEMALE
     Dosage: 125 MG, (125 MG/ML,1 X 21)
     Dates: start: 20170130, end: 20170219
  2. ANASTROZOL [Concomitant]
     Active Substance: ANASTROZOLE
     Dosage: UNK
  3. ZOLEDRONIC ACID. [Concomitant]
     Active Substance: ZOLEDRONIC ACID
     Dosage: 4 MG/ 100 ML
  4. EUTHYROX [Concomitant]
     Active Substance: LEVOTHYROXINE SODIUM
     Dosage: 100 UG, 1X/DAY (1-0-0)
  5. FASLODEX [Concomitant]
     Active Substance: FULVESTRANT
     Dosage: 250 MG, UNK
     Dates: start: 20160812, end: 20170213
  6. CANDESARTAN. [Concomitant]
     Active Substance: CANDESARTAN
     Dosage: 16 MG, 2X/DAY (1-0-1)
  7. ASPIRIN. [Concomitant]
     Active Substance: ASPIRIN
     Dosage: 1 DF, 1X/DAY (0-1-0)
  8. EXEMESTAN [Concomitant]
     Active Substance: EXEMESTANE
     Dosage: 25 MG, 1X/DAY (0-1-0)
  9. METFORMIN BIOMO [Concomitant]
     Dosage: 1350 MG, DAILY (500-0-850-0) FILM COATED TABLETS

REACTIONS (4)
  - Cerebral infarction [Not Recovered/Not Resolved]
  - Hallucination [Not Recovered/Not Resolved]
  - Hemianopia [Not Recovered/Not Resolved]
  - Visual impairment [Not Recovered/Not Resolved]

NARRATIVE: CASE EVENT DATE: 201702
